FAERS Safety Report 17387115 (Version 1)
Quarter: 2020Q1

REPORT INFORMATION
  Report Type: Other
  Country: JP (occurrence: JP)
  Receive Date: 20200206
  Receipt Date: 20200206
  Transmission Date: 20200409
  Serious: Yes (Life-Threatening)
  Sender: FDA-Public Use
  Company Number: JP-VITRUVIAS THERAPEUTICS-2079932

PATIENT
  Age: 71 Year
  Sex: Female
  Weight: 60 kg

DRUGS (7)
  1. LIDOCAINE. [Suspect]
     Active Substance: LIDOCAINE
     Route: 008
  2. PROPOFOL. [Concomitant]
     Active Substance: PROPOFOL
  3. ISOFLURANE. [Concomitant]
     Active Substance: ISOFLURANE
     Route: 055
  4. LIDOCAINE 4% [Suspect]
     Active Substance: LIDOCAINE
  5. BUPIVACAINE. [Suspect]
     Active Substance: BUPIVACAINE
  6. FENTANYL. [Concomitant]
     Active Substance: FENTANYL
  7. ROPIVACAINE HCL [Suspect]
     Active Substance: ROPIVACAINE HYDROCHLORIDE
     Route: 008

REACTIONS (1)
  - Local anaesthetic systemic toxicity [Recovered/Resolved]
